FAERS Safety Report 7151653-9 (Version None)
Quarter: 2010Q4

REPORT INFORMATION
  Report Type: 
  Country: None (occurrence: None)
  Receive Date: 20101124
  Receipt Date: 20101111
  Transmission Date: 20110411
  Serious: Yes (Hospitalization)
  Sender: FDA-Public Use
  Company Number: UTC-002306

PATIENT
  Age: 63 Year
  Sex: Male

DRUGS (1)
  1. REMODULIN [Suspect]
     Dosage: INTRAVENOUS
     Route: 042

REACTIONS (6)
  - ACCIDENTAL OVERDOSE [None]
  - CATHETER SITE INFECTION [None]
  - DEVICE LEAKAGE [None]
  - DEVICE RELATED INFECTION [None]
  - IMPAIRED HEALING [None]
  - MALAISE [None]
